FAERS Safety Report 21474612 (Version 1)
Quarter: 2022Q4

REPORT INFORMATION
  Report Type: Spontaneous
  Country: US (occurrence: None)
  Receive Date: 20221017
  Receipt Date: 20221017
  Transmission Date: 20230113
  Serious: Yes (Death)
  Sender: FDA-Public Use
  Company Number: None

PATIENT
  Sex: Male
  Weight: 52.16 kg

DRUGS (6)
  1. OPDIVO [Suspect]
     Active Substance: NIVOLUMAB
     Indication: Head and neck cancer
     Dosage: 480MG EVERY 28 D IV INFUSION?
     Route: 042
  2. AMLODIPINE [Concomitant]
     Active Substance: AMLODIPINE BESYLATE
  3. ARANESP [Concomitant]
     Active Substance: DARBEPOETIN ALFA
  4. INJECTAFER [Concomitant]
     Active Substance: FERRIC CARBOXYMALTOSE
  5. PROCRIT [Concomitant]
     Active Substance: ERYTHROPOIETIN
  6. REPAGLINIDE [Concomitant]
     Active Substance: REPAGLINIDE

REACTIONS (1)
  - Death [None]
